FAERS Safety Report 11638751 (Version 1)
Quarter: 2015Q4

REPORT INFORMATION
  Report Type: Spontaneous
  Country: US (occurrence: US)
  Receive Date: 20151016
  Receipt Date: 20151016
  Transmission Date: 20160304
  Serious: No
  Sender: FDA-Public Use
  Company Number: US-ASTRAZENECA-2015SE97226

PATIENT
  Sex: Female

DRUGS (1)
  1. BYDUREON [Suspect]
     Active Substance: EXENATIDE
     Indication: TYPE 2 DIABETES MELLITUS
     Dosage: 2 MG 4 COUNT, ONCE A WEEK.
     Route: 058
     Dates: start: 20151002

REACTIONS (5)
  - Swelling face [Unknown]
  - Paraesthesia oral [Not Recovered/Not Resolved]
  - Lip swelling [Unknown]
  - Intraocular pressure test [Unknown]
  - Hypersensitivity [Unknown]
